FAERS Safety Report 11227370 (Version 2)
Quarter: 2015Q3

REPORT INFORMATION
  Report Type: Spontaneous
  Country: ES (occurrence: ES)
  Receive Date: 20150630
  Receipt Date: 20150721
  Transmission Date: 20151125
  Serious: Yes (Death)
  Sender: FDA-Public Use
  Company Number: ES-STRIDES ARCOLAB LIMITED-2015SP000864

PATIENT

DRUGS (1)
  1. MYCOPHENOLATE MOFETIL. [Suspect]
     Active Substance: MYCOPHENOLATE MOFETIL
     Indication: LUPUS NEPHRITIS
     Dosage: UNK

REACTIONS (4)
  - Thrombocytopenia [Fatal]
  - Off label use [Unknown]
  - Ovarian haemorrhage [Fatal]
  - Toxicity to various agents [None]
